FAERS Safety Report 21568331 (Version 1)
Quarter: 2022Q4

REPORT INFORMATION
  Report Type: Spontaneous
  Country: US (occurrence: None)
  Receive Date: 20221107
  Receipt Date: 20221107
  Transmission Date: 20230113
  Serious: No
  Sender: FDA-Public Use
  Company Number: None

PATIENT
  Sex: Male

DRUGS (1)
  1. DUPIXENT [Suspect]
     Active Substance: DUPILUMAB
     Indication: Nasal polyps
     Dosage: FREQUENCY : WEEKLY;?
     Route: 058
     Dates: start: 20220331

REACTIONS (4)
  - Injection site pain [None]
  - Injection site discharge [None]
  - Device defective [None]
  - Product dose omission issue [None]
